FAERS Safety Report 8906481 (Version 1)
Quarter: 2012Q4

REPORT INFORMATION
  Report Type: Spontaneous
  Country: US (occurrence: None)
  Receive Date: 20121113
  Receipt Date: 20121113
  Transmission Date: 20130627
  Serious: Yes (Other)
  Sender: FDA-Public Use
  Company Number: None

PATIENT
  Sex: Female

DRUGS (2)
  1. ZONISAMIDE [Suspect]
     Indication: EPILEPSY
     Dosage: 2 CAPS PO BID
     Dates: start: 2011, end: 2012
  2. LAMOTRIGINE [Suspect]
     Indication: EPILEPSY
     Dosage: 2AM  3 PM
     Dates: start: 2010, end: 2011

REACTIONS (2)
  - Convulsion [None]
  - Product substitution issue [None]
